FAERS Safety Report 7965545-6 (Version None)
Quarter: 2011Q4

REPORT INFORMATION
  Report Type: 
  Country: None (occurrence: None)
  Receive Date: 20111208
  Receipt Date: 20111129
  Transmission Date: 20120403
  Serious: Yes (Other)
  Sender: FDA-Public Use
  Company Number: DE-ALEXION-A201100959

PATIENT
  Sex: Female
  Weight: 63.4 kg

DRUGS (10)
  1. AZITHROMYCIN [Concomitant]
     Dosage: 500 MG, UNK
     Route: 048
     Dates: start: 20110617, end: 20110630
  2. MEROPENEM [Concomitant]
     Indication: ESCHERICHIA INFECTION
     Dosage: 1 G, TID
     Route: 042
     Dates: start: 20110529, end: 20110614
  3. COTRIM [Concomitant]
     Indication: PROPHYLAXIS
     Dosage: 96 MG, BID
     Route: 042
     Dates: start: 20110610, end: 20110615
  4. KEPPRA [Concomitant]
     Indication: HAEMOLYTIC URAEMIC SYNDROME
     Dosage: 0.5 G, BID
     Dates: start: 20110607, end: 20110620
  5. RAMIPRIL [Concomitant]
     Indication: PROTEINURIA
     Dosage: 5 MG, UNK
     Route: 048
     Dates: start: 20110615
  6. MENINGOCOCCAL VACCINE [Concomitant]
     Indication: IMMUNISATION
     Dosage: UNK
     Dates: start: 20110615, end: 20110615
  7. AZITHROMYCIN [Concomitant]
     Indication: ANTIBIOTIC PROPHYLAXIS
     Dosage: UNK
     Dates: start: 20110606
  8. RIFAMPICIN [Concomitant]
     Indication: ESCHERICHIA INFECTION
     Dosage: 800 MG, UNK
     Route: 048
     Dates: start: 20110614, end: 20110620
  9. INSULIN [Concomitant]
     Indication: DIABETES MELLITUS
     Dosage: UNK
     Route: 058
     Dates: start: 20110612
  10. SOLIRIS [Suspect]
     Indication: HAEMOLYTIC URAEMIC SYNDROME
     Dosage: 900 MG, QW
     Route: 042
     Dates: start: 20110601, end: 20110930

REACTIONS (1)
  - PNEUMONIA [None]
